FAERS Safety Report 14234257 (Version 1)
Quarter: 2017Q4

REPORT INFORMATION
  Report Type: Spontaneous
  Country: US (occurrence: US)
  Receive Date: 20171129
  Receipt Date: 20171129
  Transmission Date: 20180321
  Serious: No
  Sender: FDA-Public Use
  Company Number: US-JNJFOC-20171122582

PATIENT
  Age: 3 Year
  Sex: Female

DRUGS (2)
  1. INFANTS MOTRIN [Suspect]
     Active Substance: IBUPROFEN
     Route: 065
  2. INFANTS MOTRIN [Suspect]
     Active Substance: IBUPROFEN
     Indication: PRODUCT USED FOR UNKNOWN INDICATION
     Route: 065

REACTIONS (2)
  - Drug administered to patient of inappropriate age [Unknown]
  - Incorrect dose administered [Unknown]
